FAERS Safety Report 15095994 (Version 1)
Quarter: 2018Q3

REPORT INFORMATION
  Report Type: Spontaneous
  Country: IT (occurrence: IT)
  Receive Date: 20180702
  Receipt Date: 20180702
  Transmission Date: 20181010
  Serious: Yes (Life-Threatening, Hospitalization, Other)
  Sender: FDA-Public Use
  Company Number: IT-ACCORD-068919

PATIENT
  Age: 43 Year
  Sex: Male

DRUGS (3)
  1. DAUNORUBICIN [Suspect]
     Active Substance: DAUNORUBICIN
     Indication: ACUTE MYELOID LEUKAEMIA
  2. ETOPOSIDE. [Suspect]
     Active Substance: ETOPOSIDE
     Indication: ACUTE MYELOID LEUKAEMIA
  3. CYTARABINE/CYTARABINE HYDROCHLORIDE/CYTARABINE OCFOSFATE [Suspect]
     Active Substance: CYTARABINE
     Indication: ACUTE MYELOID LEUKAEMIA

REACTIONS (15)
  - Visceral congestion [Unknown]
  - Melaena [Unknown]
  - Anaemia [Unknown]
  - Haemodynamic instability [Unknown]
  - Intestinal ischaemia [None]
  - Cytomegalovirus viraemia [None]
  - Mesenteric abscess [Unknown]
  - Abscess intestinal [Unknown]
  - Intestinal haemorrhage [None]
  - Visceral oedema [Unknown]
  - Bronchopulmonary aspergillosis [Recovered/Resolved]
  - Drug intolerance [None]
  - Small intestinal perforation [Unknown]
  - Neutropenia [Recovered/Resolved]
  - Hallucination [None]
